FAERS Safety Report 8474710-3 (Version None)
Quarter: 2012Q2

REPORT INFORMATION
  Report Type: 
  Country: None (occurrence: None)
  Receive Date: 20120622
  Receipt Date: 20120611
  Transmission Date: 20120825
  Serious: Yes (Hospitalization, Other)
  Sender: FDA-Public Use
  Company Number: 2012P1040872

PATIENT
  Age: 64 Year
  Sex: Male

DRUGS (1)
  1. AMOXICILLIN [Suspect]
     Indication: TOOTH EXTRACTION
     Dosage: 1 GM; X1; PO
     Route: 048

REACTIONS (8)
  - LOSS OF CONSCIOUSNESS [None]
  - DRUG HYPERSENSITIVITY [None]
  - KOUNIS SYNDROME [None]
  - ANAPHYLACTIC SHOCK [None]
  - ARTERIOSPASM CORONARY [None]
  - SINUS TACHYCARDIA [None]
  - CORONARY ARTERY STENOSIS [None]
  - ACUTE MYOCARDIAL INFARCTION [None]
